FAERS Safety Report 7498917-7 (Version None)
Quarter: 2011Q2

REPORT INFORMATION
  Report Type: 
  Country: None (occurrence: None)
  Receive Date: 20110524
  Receipt Date: 20110425
  Transmission Date: 20111010
  Serious: Yes (Hospitalization, Other)
  Sender: FDA-Public Use
  Company Number: US-BAYER-2011-011704

PATIENT
  Age: 19 Year
  Sex: Female
  Weight: 61.224 kg

DRUGS (7)
  1. AZITHROMYCIN [Concomitant]
     Dosage: UNK
     Dates: start: 20090801
  2. METRONIDAZOLE [Concomitant]
     Dosage: UNK
     Dates: start: 20090701
  3. MOTRIN [Concomitant]
  4. METRONIDAZOLE [Concomitant]
     Dosage: UNK
     Dates: start: 20070501
  5. YAZ [Suspect]
     Indication: PRODUCT USED FOR UNKNOWN INDICATION
     Dosage: UNK
     Dates: start: 20070629, end: 20090601
  6. YAZ [Suspect]
     Dosage: UNK
     Route: 048
     Dates: start: 20070601, end: 20090601
  7. YAZ [Suspect]
     Dosage: UNK
     Dates: start: 20091101, end: 20101101

REACTIONS (4)
  - PAIN [None]
  - INJURY [None]
  - CHOLECYSTITIS CHRONIC [None]
  - CHOLECYSTECTOMY [None]
